FAERS Safety Report 17414846 (Version 1)
Quarter: 2020Q1

REPORT INFORMATION
  Report Type: Spontaneous
  Country: CN (occurrence: CN)
  Receive Date: 20200213
  Receipt Date: 20200213
  Transmission Date: 20200409
  Serious: Yes (Hospitalization)
  Sender: FDA-Public Use
  Company Number: CN-B.I. PHARMACEUTICALS,INC./RIDGEFIELD-2020-BI-007309

PATIENT
  Age: 56 Year
  Sex: Female
  Weight: 38 kg

DRUGS (4)
  1. GILOTRIF [Suspect]
     Active Substance: AFATINIB
     Indication: LUNG NEOPLASM MALIGNANT
     Route: 050
     Dates: start: 20190807, end: 20190807
  2. GEMCITABINE. [Suspect]
     Active Substance: GEMCITABINE
     Route: 050
     Dates: start: 20190816, end: 20190816
  3. GEMCITABINE. [Suspect]
     Active Substance: GEMCITABINE
     Indication: LUNG NEOPLASM MALIGNANT
     Route: 050
     Dates: start: 20190809, end: 20190809
  4. NEDAPLATIN [Suspect]
     Active Substance: NEDAPLATIN
     Indication: LUNG NEOPLASM MALIGNANT
     Route: 050
     Dates: start: 20190809, end: 20190809

REACTIONS (2)
  - Back pain [Unknown]
  - Bone marrow failure [Unknown]

NARRATIVE: CASE EVENT DATE: 20190828
